FAERS Safety Report 8109560-0 (Version None)
Quarter: 2012Q1

REPORT INFORMATION
  Report Type: 
  Country: None (occurrence: None)
  Receive Date: 20120202
  Receipt Date: 20120201
  Transmission Date: 20120608
  Serious: Yes (Hospitalization, Disabling, Other)
  Sender: FDA-Public Use
  Company Number: CH-PFIZER INC-2012003290

PATIENT
  Age: 60 Year
  Sex: Male
  Weight: 78 kg

DRUGS (2)
  1. NICORETTE [Suspect]
     Dosage: 15 MG, 1X/DAY
     Route: 062
     Dates: start: 20111115
  2. VARENICLINE TARTRATE [Suspect]
     Indication: SMOKING CESSATION THERAPY
     Dosage: 1 MG, 1X/DAY
     Route: 048
     Dates: start: 20111202, end: 20111224

REACTIONS (3)
  - HEMIPARESIS [None]
  - MUSCULAR WEAKNESS [None]
  - CEREBROVASCULAR ACCIDENT [None]
